FAERS Safety Report 5913529-1 (Version None)
Quarter: 2008Q4

REPORT INFORMATION
  Report Type: 
  Country: None (occurrence: None)
  Receive Date: 20081009
  Receipt Date: 20080818
  Transmission Date: 20090506
  Serious: No
  Sender: FDA-Public Use
  Company Number: US-BAYER-200813487BCC

PATIENT
  Age: 69 Year
  Sex: Male
  Weight: 84 kg

DRUGS (6)
  1. ALEVE-D SINUS + COLD [Suspect]
     Indication: NASOPHARYNGITIS
     Dosage: TOTAL DAILY DOSE: 440 MG  UNIT DOSE: 220 MG
     Route: 048
     Dates: start: 20080816, end: 20080818
  2. GLUCOSAMINE [Concomitant]
  3. TRIAMTERENE [Concomitant]
  4. COZAAR [Concomitant]
  5. SERTRALINE [Concomitant]
  6. OMEPRAZOLE [Concomitant]

REACTIONS (2)
  - DIZZINESS [None]
  - FATIGUE [None]
